FAERS Safety Report 23519577 (Version 4)
Quarter: 2025Q2

REPORT INFORMATION
  Report Type: Spontaneous
  Country: US (occurrence: US)
  Receive Date: 20240213
  Receipt Date: 20250402
  Transmission Date: 20250716
  Serious: Yes (Other)
  Sender: SANOFI AVENTIS
  Company Number: US-SA-SAC20240212000055

PATIENT
  Age: 54 Year
  Sex: Male
  Weight: 80.73 kg

DRUGS (27)
  1. DUPIXENT [Suspect]
     Active Substance: DUPILUMAB
     Indication: Illness
     Dosage: 300 MG, QOW
     Route: 058
     Dates: start: 2020
  2. DUPIXENT [Suspect]
     Active Substance: DUPILUMAB
     Indication: Nasal polyps
  3. DUPIXENT [Suspect]
     Active Substance: DUPILUMAB
     Indication: Immunodeficiency
  4. DUPIXENT [Suspect]
     Active Substance: DUPILUMAB
     Indication: Chronic rhinosinusitis with nasal polyps
  5. TESTOSTERONE [Suspect]
     Active Substance: TESTOSTERONE
  6. CUTAQUIG [Suspect]
     Active Substance: HUMAN IMMUNOGLOBULIN G
  7. ACETAMINOPHEN [Concomitant]
     Active Substance: ACETAMINOPHEN
  8. DIPHENHYDRAMINE HYDROCHLORIDE [Concomitant]
     Active Substance: DIPHENHYDRAMINE HYDROCHLORIDE
  9. LIDOCAINE [Concomitant]
     Active Substance: LIDOCAINE
  10. EPINEPHRINE [Concomitant]
     Active Substance: EPINEPHRINE
  11. METAXALONE [Concomitant]
     Active Substance: METAXALONE
  12. PREGABALIN [Concomitant]
     Active Substance: PREGABALIN
  13. CRESTOR [Concomitant]
     Active Substance: ROSUVASTATIN CALCIUM
  14. AMITRIPTYLINE HYDROCHLORIDE [Concomitant]
     Active Substance: AMITRIPTYLINE HYDROCHLORIDE
  15. BUPROPION [Concomitant]
     Active Substance: BUPROPION
  16. CLARITHROMYCIN [Concomitant]
     Active Substance: CLARITHROMYCIN
  17. OMEGA 3 KRILL OIL [Concomitant]
  18. VITAMINS NOS [Concomitant]
     Active Substance: VITAMINS
  19. BACLOFEN [Concomitant]
     Active Substance: BACLOFEN
  20. CLARITIN [Concomitant]
     Active Substance: LORATADINE
  21. PREGABALIN [Concomitant]
     Active Substance: PREGABALIN
  22. AMPHETAMINE [Concomitant]
     Active Substance: AMPHETAMINE
  23. VENLAFAXINE [Concomitant]
     Active Substance: VENLAFAXINE HYDROCHLORIDE
  24. ESOMEPRAZOLE [Concomitant]
     Active Substance: ESOMEPRAZOLE
  25. DEXTROAMPHETAMINE [Concomitant]
     Active Substance: DEXTROAMPHETAMINE
  26. IRBESARTAN [Concomitant]
     Active Substance: IRBESARTAN
  27. CREON [Concomitant]
     Active Substance: PANCRELIPASE AMYLASE\PANCRELIPASE LIPASE\PANCRELIPASE PROTEASE

REACTIONS (8)
  - Spinal operation [Unknown]
  - Nausea [Unknown]
  - Fatigue [Unknown]
  - Procedural pain [Unknown]
  - Hypersensitivity [Not Recovered/Not Resolved]
  - Rash [Unknown]
  - Injection site pain [Unknown]
  - Product use in unapproved indication [Unknown]

NARRATIVE: CASE EVENT DATE: 20200101
